FAERS Safety Report 5635543-6 (Version None)
Quarter: 2008Q1

REPORT INFORMATION
  Report Type: 
  Country: None (occurrence: None)
  Receive Date: 20080222
  Receipt Date: 20080211
  Transmission Date: 20080703
  Serious: Yes (Other)
  Sender: FDA-Public Use
  Company Number: US-PFIZER INC-2008014874

PATIENT
  Sex: Male
  Weight: 122.9 kg

DRUGS (2)
  1. CHANTIX [Suspect]
     Indication: SMOKING CESSATION THERAPY
     Dates: start: 20080109, end: 20080101
  2. NEXIUM [Concomitant]

REACTIONS (2)
  - DEPRESSION [None]
  - MANIA [None]
